FAERS Safety Report 5711435-9 (Version None)
Quarter: 2008Q2

REPORT INFORMATION
  Report Type: 
  Country: None (occurrence: None)
  Receive Date: 20080418
  Receipt Date: 20080418
  Transmission Date: 20081010
  Serious: Yes (Other)
  Sender: FDA-Public Use
  Company Number: None

PATIENT
  Sex: Female

DRUGS (2)
  1. AMBIEN CR [Suspect]
     Indication: INSOMNIA
     Dosage: PO QHS DAILY
     Route: 048
  2. BENICAR HCT/CADUET [Concomitant]

REACTIONS (3)
  - AMNESIA [None]
  - SLEEP TALKING [None]
  - SOMNAMBULISM [None]
